FAERS Safety Report 15400069 (Version 1)
Quarter: 2018Q3

REPORT INFORMATION
  Report Type: Report from Study
  Country: None (occurrence: BG)
  Receive Date: 20180919
  Receipt Date: 20180919
  Transmission Date: 20181010
  Serious: Yes (Hospitalization)
  Sender: FDA-Public Use
  Company Number: BG-ABBVIE-18S-022-2489104-00

PATIENT
  Age: 72 Year
  Sex: Male

DRUGS (1)
  1. DUODOPA [Suspect]
     Active Substance: CARBIDOPA\LEVODOPA
     Indication: PARKINSON^S DISEASE
     Dosage: MD? 6 ML CR? 2.0 ML/H ED? 1.0 ML
     Route: 050
     Dates: start: 201510

REACTIONS (1)
  - Volvulus [Recovered/Resolved]

NARRATIVE: CASE EVENT DATE: 20180629
